FAERS Safety Report 9391783 (Version 1)
Quarter: 2013Q3

REPORT INFORMATION
  Report Type: Report from Study
  Country: DE (occurrence: DE)
  Receive Date: 20130709
  Receipt Date: 20130709
  Transmission Date: 20140515
  Serious: Yes (Hospitalization)
  Sender: FDA-Public Use
  Company Number: DE-ACTELION-A-US2013-85512

PATIENT
  Age: 61 Year
  Sex: Male

DRUGS (2)
  1. VENTAVIS [Suspect]
     Indication: PULMONARY ARTERIAL HYPERTENSION
     Dosage: 2.5 MCG, UNK
     Route: 055
     Dates: start: 20110223
  2. MARCUMAR [Suspect]

REACTIONS (5)
  - Choroidal haemorrhage [Unknown]
  - Retinal haemorrhage [Unknown]
  - Glaucoma [Unknown]
  - Haemorrhage [Unknown]
  - Blindness unilateral [Not Recovered/Not Resolved]
